FAERS Safety Report 5082102-2 (Version None)
Quarter: 2006Q3

REPORT INFORMATION
  Report Type: 
  Country: None (occurrence: None)
  Receive Date: 20060811
  Receipt Date: 20060731
  Transmission Date: 20061208
  Serious: Yes (Other)
  Sender: FDA-Public Use
  Company Number: 2006089305

PATIENT
  Age: 35 Year
  Sex: Male
  Weight: 70 kg

DRUGS (8)
  1. ZYVOX [Suspect]
     Indication: OSTEITIS
     Dosage: 1200 MG (2 IN 1 D), INTRAVENOUS
     Route: 042
     Dates: start: 20060630, end: 20060713
  2. RIFAMPICIN [Concomitant]
  3. INSULIN GLARGINE (INSULIN GLARGINE) [Concomitant]
  4. PRISTINAMYCIN (PRISTINAMYCIN) [Concomitant]
  5. LOXAPINE [Concomitant]
  6. CLONAZEPAM [Concomitant]
  7. HEPARIN CALCIUM [Concomitant]
  8. INSULIN ASPART (INSULIN ASPART) [Concomitant]

REACTIONS (4)
  - ANAEMIA [None]
  - DIABETIC COMPLICATION [None]
  - ENDOCARDITIS [None]
  - LEG AMPUTATION [None]
